FAERS Safety Report 7939113-6 (Version None)
Quarter: 2011Q4

REPORT INFORMATION
  Report Type: 
  Country: None (occurrence: None)
  Receive Date: 20111124
  Receipt Date: 20111111
  Transmission Date: 20120403
  Serious: Yes (Hospitalization)
  Sender: FDA-Public Use
  Company Number: JP-ROCHE-1014063

PATIENT
  Sex: Female
  Weight: 53 kg

DRUGS (10)
  1. ALLOPURINOL [Concomitant]
     Indication: HYPERURICAEMIA
     Route: 048
  2. ACTEMRA [Suspect]
     Indication: RHEUMATOID ARTHRITIS
     Route: 041
     Dates: start: 20090625, end: 20091015
  3. BREDININ [Concomitant]
     Indication: RHEUMATOID ARTHRITIS
     Route: 048
  4. CRESTOR [Concomitant]
     Indication: HYPERLIPIDAEMIA
     Route: 048
  5. ACTEMRA [Suspect]
     Route: 041
     Dates: start: 20091111, end: 20100317
  6. ACTEMRA [Suspect]
     Dosage: 400-440MG
     Route: 041
     Dates: start: 20100513
  7. PREDNISOLONE [Concomitant]
     Indication: RHEUMATOID ARTHRITIS
     Route: 048
  8. ROXATIDINE ACETATE HCL [Concomitant]
     Route: 048
  9. CYTOTEC [Concomitant]
     Indication: PROPHYLAXIS AGAINST GASTROINTESTINAL ULCER
     Route: 048
  10. PEON [Concomitant]
     Indication: RHEUMATOID ARTHRITIS
     Route: 048

REACTIONS (1)
  - DIVERTICULUM INTESTINAL HAEMORRHAGIC [None]
